FAERS Safety Report 11105427 (Version 2)
Quarter: 2015Q2

REPORT INFORMATION
  Report Type: Report from Study
  Country: IN (occurrence: IN)
  Receive Date: 20150512
  Receipt Date: 20150514
  Transmission Date: 20150821
  Serious: Yes (Other)
  Sender: FDA-Public Use
  Company Number: PHHO2015IN007808

PATIENT
  Age: 49 Year
  Sex: Male
  Weight: 46.7 kg

DRUGS (8)
  1. ONDASETRON [Concomitant]
     Active Substance: ONDANSETRON
     Indication: VOMITING
  2. RITUXAN [Suspect]
     Active Substance: RITUXIMAB
     Indication: NON-HODGKIN^S LYMPHOMA
     Dosage: CODE NOT BROKEN
     Route: 042
     Dates: start: 20150115
  3. VINCRISTINE [Concomitant]
     Active Substance: VINCRISTINE
     Indication: CHEMOTHERAPY
     Dosage: 2 MG, UNK
     Route: 042
     Dates: start: 20150115
  4. PREDNISOLONE. [Concomitant]
     Active Substance: PREDNISOLONE
     Indication: CHEMOTHERAPY
     Dosage: 100 MG, UNK
     Route: 048
     Dates: start: 20150115
  5. CYCLOPHOSPHAMIDE. [Concomitant]
     Active Substance: CYCLOPHOSPHAMIDE
     Indication: CHEMOTHERAPY
     Dosage: 1095 MG, UNK
     Route: 042
     Dates: start: 20150115
  6. MABTHERA [Suspect]
     Active Substance: RITUXIMAB
     Indication: NON-HODGKIN^S LYMPHOMA
     Dosage: CODE NOT BROKEN
     Route: 042
     Dates: start: 20150115
  7. ONDASETRON [Concomitant]
     Active Substance: ONDANSETRON
     Indication: NAUSEA
     Dosage: 1 TABLET , BID
     Route: 065
     Dates: start: 20150427
  8. BLINDED NO TREATMENT RECEIVED [Suspect]
     Active Substance: UNSPECIFIED INGREDIENT
     Indication: NON-HODGKIN^S LYMPHOMA
     Dosage: CODE NOT BROKEN
     Route: 042
     Dates: start: 20150115

REACTIONS (1)
  - Back pain [Recovered/Resolved]

NARRATIVE: CASE EVENT DATE: 20150430
